FAERS Safety Report 8444144-6 (Version None)
Quarter: 2012Q2

REPORT INFORMATION
  Report Type: 
  Country: None (occurrence: None)
  Receive Date: 20120611
  Receipt Date: 20120523
  Transmission Date: 20120825
  Serious: Yes (Death)
  Sender: FDA-Public Use
  Company Number: 2012-097

PATIENT
  Age: 88 Year
  Sex: Female

DRUGS (1)
  1. FAZACLO ODT [Suspect]
     Dosage: 25-50 MG QD, ORAL
     Route: 048
     Dates: start: 20090610

REACTIONS (15)
  - METASTASES TO LUNG [None]
  - PNEUMONIA [None]
  - ASTHENIA [None]
  - PAIN [None]
  - ACUTE RESPIRATORY FAILURE [None]
  - CONFUSIONAL STATE [None]
  - RESTLESSNESS [None]
  - COLD SWEAT [None]
  - HEADACHE [None]
  - LUNG ABSCESS [None]
  - RESPIRATORY ARREST [None]
  - GASTRIC NEOPLASM [None]
  - FEELING COLD [None]
  - ABDOMINAL PAIN UPPER [None]
  - HIATUS HERNIA [None]
